FAERS Safety Report 9969808 (Version 6)
Quarter: 2014Q2

REPORT INFORMATION
  Report Type: Report from Study
  Country: DE (occurrence: DE)
  Receive Date: 20140306
  Receipt Date: 20140626
  Transmission Date: 20141212
  Serious: Yes (Hospitalization)
  Sender: FDA-Public Use
  Company Number: DE-ROCHE-1300228

PATIENT
  Age: 74 Year
  Sex: Female
  Weight: 68 kg

DRUGS (22)
  1. VEMURAFENIB [Suspect]
     Indication: MALIGNANT MELANOMA
     Route: 048
     Dates: start: 20130927, end: 20131106
  2. VEMURAFENIB [Suspect]
     Dosage: DOSE REDUCED
     Route: 048
  3. PREDNISOLONE [Concomitant]
     Indication: RASH
     Route: 042
     Dates: start: 20131006, end: 20131006
  4. DECORTIN [Concomitant]
     Indication: RASH
     Route: 042
     Dates: start: 20131006, end: 20131006
  5. TAVEGIL [Concomitant]
     Indication: RASH
     Route: 042
     Dates: start: 20131006, end: 20131006
  6. PARACETAMOL [Concomitant]
     Indication: RASH
     Route: 048
     Dates: start: 20131010
  7. PARACETAMOL [Concomitant]
     Dosage: INDICATION TENSION PECTORAL GRIDLE AND BACK.
     Route: 065
     Dates: start: 201307
  8. CIPROFLOXACIN [Concomitant]
     Indication: URINARY TRACT INFECTION
     Route: 048
     Dates: start: 20131010, end: 20131018
  9. BIFITERAL [Concomitant]
     Dosage: INDICATION:OBSSTPATION
     Route: 048
     Dates: start: 20131007, end: 20131007
  10. OXAZEPAM [Concomitant]
     Indication: INSOMNIA
     Route: 048
     Dates: start: 20131010, end: 20131013
  11. METHYLPREDNISOLONE [Concomitant]
     Indication: RASH
     Route: 048
     Dates: start: 20131010, end: 20131011
  12. METHYLPREDNISOLONE [Concomitant]
     Route: 048
     Dates: start: 20131012, end: 20131014
  13. METHYLPREDNISOLONE [Concomitant]
     Route: 048
     Dates: start: 20131015, end: 20131016
  14. METHYLPREDNISOLONE [Concomitant]
     Route: 048
     Dates: start: 20131017, end: 20131018
  15. PANTOPRAZOLE [Concomitant]
     Indication: RASH
     Route: 048
     Dates: start: 20131010
  16. NOVAMINSULFON [Concomitant]
     Dosage: INDICATION TENSION PECTORAL GRIDLE AND BACK.
     Route: 048
     Dates: start: 201307
  17. IBUPROFEN [Concomitant]
     Dosage: INDICATION TENSION PECTORAL GRIDLE AND BACK.
     Route: 048
     Dates: start: 201307
  18. TRIMIPRAMINE [Concomitant]
     Indication: SLEEP DISORDER
     Route: 048
  19. AMCINONIDE [Concomitant]
     Indication: RASH
     Route: 061
     Dates: start: 2012
  20. QUAZEPAM [Concomitant]
     Indication: SLEEP DISORDER
     Route: 048
     Dates: start: 2013
  21. CLEMASTINE [Concomitant]
     Indication: RASH
     Route: 042
     Dates: start: 20131006, end: 20131006
  22. COBIMETINIB [Suspect]
     Indication: MALIGNANT MELANOMA
     Route: 048
     Dates: start: 20130927, end: 20131111

REACTIONS (1)
  - Aphthous stomatitis [Recovered/Resolved]
